APPROVED DRUG PRODUCT: FOSRENOL
Active Ingredient: LANTHANUM CARBONATE
Strength: EQ 1GM BASE
Dosage Form/Route: TABLET, CHEWABLE;ORAL
Application: N021468 | Product #004 | TE Code: AB
Applicant: TAKEDA PHARMACEUTICALS USA INC
Approved: Nov 23, 2005 | RLD: Yes | RS: Yes | Type: RX